FAERS Safety Report 7020773-1 (Version None)
Quarter: 2010Q3

REPORT INFORMATION
  Report Type: 
  Country: None (occurrence: None)
  Receive Date: 20100924
  Receipt Date: 20100913
  Transmission Date: 20110219
  Serious: Yes (Death, Other)
  Sender: FDA-Public Use
  Company Number: 2010EU004902

PATIENT
  Sex: Male

DRUGS (2)
  1. TACROLIMUS [Suspect]
     Indication: LIVER AND SMALL INTESTINE TRANSPLANT
  2. THYMOGLOBULIN [Suspect]
     Indication: LIVER AND SMALL INTESTINE TRANSPLANT

REACTIONS (3)
  - AUTOIMMUNE PANCYTOPENIA [None]
  - ERYTHEMA INFECTIOSUM [None]
  - PNEUMOCYSTIS JIROVECI INFECTION [None]
